FAERS Safety Report 6656817-6 (Version None)
Quarter: 2010Q1

REPORT INFORMATION
  Report Type: 
  Country: None (occurrence: None)
  Receive Date: 20100325
  Receipt Date: 20100315
  Transmission Date: 20100710
  Serious: Yes (Hospitalization)
  Sender: FDA-Public Use
  Company Number: US-1180514

PATIENT
  Age: 56 Year
  Sex: Female
  Weight: 147.8726 kg

DRUGS (12)
  1. NEOMYCIN AND POLYMXIN B SULFATES AND HYDROCORTISONE [Suspect]
     Indication: CONJUNCTIVITIS
     Dosage: (2 GTT OU TTD OPHTHALMIC)
     Route: 047
     Dates: start: 20091228, end: 20091229
  2. NEOMYCIN AND POLYMXIN B SULFATES AND HYDROCORTISONE [Suspect]
     Indication: HYPERSENSITIVITY
     Dosage: (2 GTT OU TTD OPHTHALMIC)
     Route: 047
     Dates: start: 20091228, end: 20091229
  3. NEOMYCIN AND POLYMXIN B SULFATES AND HYDROCORTISONE [Suspect]
     Indication: OCULAR HYPERAEMIA
     Dosage: (2 GTT OU TTD OPHTHALMIC)
     Route: 047
     Dates: start: 20091228, end: 20091229
  4. NEOMYCIN AND POLYMXIN B SULFATES AND HYDROCORTISONE [Suspect]
     Indication: SINUSITIS
     Dosage: (2 GTT OU TTD OPHTHALMIC)
     Route: 047
     Dates: start: 20091228, end: 20091229
  5. GLIPIZIDE [Concomitant]
  6. ALBUTEROL [Concomitant]
  7. TOPROL-XL [Concomitant]
  8. LASIX [Concomitant]
  9. K [Concomitant]
  10. DARVOCET [Concomitant]
  11. ENALAPRIL MALEATE [Concomitant]
  12. TRAMADOL HCL [Concomitant]

REACTIONS (8)
  - BLISTER [None]
  - EYE IRRITATION [None]
  - EYE PAIN [None]
  - EYELID OEDEMA [None]
  - OCULAR HYPERAEMIA [None]
  - PRURITUS [None]
  - VISION BLURRED [None]
  - VISUAL IMPAIRMENT [None]
